FAERS Safety Report 8802067 (Version 1)
Quarter: 2012Q4

REPORT INFORMATION
  Report Type: 
  Country: US (occurrence: US)
  Receive Date: 20120921
  Receipt Date: 20120921
  Transmission Date: 20130627
  Serious: Yes (Other)
  Sender: FDA-Public Use
  Company Number: US-AMGEN-USASP2012056293

PATIENT
  Age: 59 Year
  Sex: Male
  Weight: 68.03 kg

DRUGS (3)
  1. PROCRIT [Suspect]
     Indication: NEPHROGENIC ANAEMIA
     Dosage: UNK UNK, q3wk
     Dates: start: 201206, end: 201208
  2. PROCRIT [Suspect]
     Indication: HAEMODIALYSIS
  3. PREDNISONE [Concomitant]
     Dosage: UNK
     Dates: start: 20120831

REACTIONS (4)
  - Haemolysis [Unknown]
  - Haemoglobin decreased [Unknown]
  - Aplasia pure red cell [Unknown]
  - Drug ineffective [Unknown]
